FAERS Safety Report 18441278 (Version 1)
Quarter: 2020Q4

REPORT INFORMATION
  Report Type: Report from Study
  Country: US (occurrence: US)
  Receive Date: 20201029
  Receipt Date: 20201029
  Transmission Date: 20210114
  Serious: No
  Sender: FDA-Public Use
  Company Number: US-KYOWAKIRIN-2020BKK017481

PATIENT

DRUGS (2)
  1. NOURIANZ [Suspect]
     Active Substance: ISTRADEFYLLINE
     Dosage: HALF DOSE OF 20 MG, UNKNOWN
     Route: 065
  2. NOURIANZ [Suspect]
     Active Substance: ISTRADEFYLLINE
     Indication: PRODUCT USED FOR UNKNOWN INDICATION
     Dosage: 20 MG, UNKNOWN
     Route: 065

REACTIONS (2)
  - Insomnia [Recovered/Resolved]
  - Wrong technique in product usage process [Not Recovered/Not Resolved]
